FAERS Safety Report 9731575 (Version 3)
Quarter: 2014Q1

REPORT INFORMATION
  Report Type: Report from Study
  Country: US (occurrence: US)
  Receive Date: 20131203
  Receipt Date: 20140123
  Transmission Date: 20141002
  Serious: Yes (Death, Other)
  Sender: FDA-Public Use
  Company Number: PHEH2013US024995

PATIENT
  Age: 54 Year
  Sex: Female
  Weight: 104.3 kg

DRUGS (10)
  1. GILENYA [Suspect]
     Dosage: 0.5 MG, QD
     Route: 048
     Dates: start: 201309
  2. AMPYRA [Concomitant]
  3. PROCARDIA [Concomitant]
  4. LASIX [Concomitant]
  5. PRILOSEC [Concomitant]
  6. BACLOFEN [Concomitant]
  7. ZOLOFT [Concomitant]
  8. TOPAMAX [Concomitant]
  9. OXYGEN [Concomitant]
  10. ALBUTEROL [Concomitant]

REACTIONS (11)
  - Cardio-respiratory arrest [Fatal]
  - Respiratory failure [Fatal]
  - Respiratory distress [Fatal]
  - Loss of consciousness [Fatal]
  - Apnoea [Fatal]
  - Pulse absent [Fatal]
  - Cyanosis [Unknown]
  - Blood glucose increased [Unknown]
  - Heart rate increased [Unknown]
  - Mucous membrane disorder [Unknown]
  - Asthenia [Unknown]
